FAERS Safety Report 5574445-0 (Version None)
Quarter: 2007Q4

REPORT INFORMATION
  Report Type: 
  Country: None (occurrence: None)
  Receive Date: 20071226
  Receipt Date: 20071226
  Transmission Date: 20080405
  Serious: Yes (Hospitalization)
  Sender: FDA-Public Use
  Company Number: None

PATIENT
  Sex: Female
  Weight: 53.0709 kg

DRUGS (2)
  1. LAMICTAL [Suspect]
     Indication: CONVULSION
     Dosage: LAMICTAL TWICE DAILY PO
     Route: 048
     Dates: start: 20070912, end: 20071118
  2. KEPPRA [Suspect]
     Indication: CONVULSION
     Dosage: KAPPRA TWICE DAILY
     Dates: start: 20071118, end: 20071214

REACTIONS (1)
  - TOXIC EPIDERMAL NECROLYSIS [None]
